FAERS Safety Report 13328169 (Version 1)
Quarter: 2017Q1

REPORT INFORMATION
  Report Type: Spontaneous
  Country: US (occurrence: US)
  Receive Date: 20170313
  Receipt Date: 20170313
  Transmission Date: 20170428
  Serious: No
  Sender: FDA-Public Use
  Company Number: US-JNJFOC-20170218247

PATIENT

DRUGS (2)
  1. ROGAINE [Suspect]
     Active Substance: MINOXIDIL
     Indication: PRODUCT USED FOR UNKNOWN INDICATION
     Route: 061
     Dates: start: 20160615
  2. ROGAINE [Suspect]
     Active Substance: MINOXIDIL
     Route: 061

REACTIONS (2)
  - Adverse event [Unknown]
  - Product quality issue [Unknown]
